FAERS Safety Report 7659403-4 (Version None)
Quarter: 2011Q3

REPORT INFORMATION
  Report Type: 
  Country: None (occurrence: None)
  Receive Date: 20110805
  Receipt Date: 20110722
  Transmission Date: 20111222
  Serious: Yes (Other)
  Sender: FDA-Public Use
  Company Number: DE-CELGENEUS-062-21880-11051154

PATIENT
  Age: 63 Year
  Sex: Male

DRUGS (5)
  1. REVLIMID [Suspect]
     Indication: MULTIPLE MYELOMA
     Dosage: 25 MILLIGRAM
     Route: 048
     Dates: start: 20090821
  2. REVLIMID [Suspect]
     Dosage: 20 MILLIGRAM
     Route: 048
     Dates: start: 20091120, end: 20100304
  3. REVLIMID [Suspect]
     Route: 048
     Dates: end: 20100709
  4. REVLIMID [Suspect]
     Dosage: 15 MILLIGRAM
     Route: 048
     Dates: start: 20100312, end: 20100616
  5. ASPIRIN [Concomitant]
     Indication: PROPHYLAXIS
     Route: 065

REACTIONS (1)
  - SUBCLAVIAN STEAL SYNDROME [None]
